FAERS Safety Report 5081152-X (Version None)
Quarter: 2006Q3

REPORT INFORMATION
  Report Type: 
  Country: None (occurrence: None)
  Receive Date: 20060720
  Receipt Date: 20060301
  Transmission Date: 20061208
  Serious: Yes (Other)
  Sender: FDA-Public Use
  Company Number: 2006036650

PATIENT
  Age: 65 Year
  Sex: Male
  Weight: 158.759 kg

DRUGS (2)
  1. CELEBREX [Suspect]
     Indication: OSTEOARTHRITIS
     Dosage: (2 IN 1 D)
     Dates: start: 20020101
  2. ALL OTHER THERAPEUTIC PRODUCTS (ALL OTHER THERAPEUTIC PRODUCTS) [Concomitant]

REACTIONS (2)
  - DRUG INEFFECTIVE [None]
  - MYOCARDIAL INFARCTION [None]
